FAERS Safety Report 5074828-1 (Version None)
Quarter: 2006Q3

REPORT INFORMATION
  Report Type: 
  Country: None (occurrence: None)
  Receive Date: 20060804
  Receipt Date: 20060720
  Transmission Date: 20061208
  Serious: Yes (Death)
  Sender: FDA-Public Use
  Company Number: 2006S1006699

PATIENT
  Age: 62 Year
  Sex: Female

DRUGS (5)
  1. CLOZAPINE [Suspect]
     Indication: PSYCHOTIC DISORDER
     Dosage: 200 MG; HS; PO
     Route: 048
     Dates: start: 20031001, end: 20060101
  2. ADVAIR DISKUS 100/50 [Concomitant]
  3. RANITIDINE [Concomitant]
  4. VALPROATE SODIUM [Concomitant]
  5. OXYBUTYNIN [Concomitant]

REACTIONS (1)
  - GRANULOCYTOPENIA [None]
